FAERS Safety Report 4688357-8 (Version None)
Quarter: 2005Q2

REPORT INFORMATION
  Report Type: 
  Country: None (occurrence: None)
  Receive Date: 20050609
  Receipt Date: 20050527
  Transmission Date: 20051028
  Serious: Yes (Hospitalization)
  Sender: FDA-Public Use
  Company Number: TCI2005A01926

PATIENT
  Age: 74 Year
  Sex: Male

DRUGS (9)
  1. ACTOS [Suspect]
     Indication: DIABETES MELLITUS
     Dosage: 15 MG (15 MG, 1 IN 1 D) PER ORAL
     Route: 048
     Dates: start: 20050326, end: 20050329
  2. BASEN TABLETS 0.3 (VOGLIBOSE) [Concomitant]
  3. BLOPRESS TABLETS 8 (CANDESARTAN CILEXETIL) [Concomitant]
  4. AMARYL [Concomitant]
  5. NORVASC [Concomitant]
  6. FLUITRAN (TRICHLORMETHIAZIDE) [Concomitant]
  7. MAGNESIUM OXIDE [Concomitant]
  8. BIOFERMIN (BIOFERMIN) [Concomitant]
  9. PANCREATIN TRIPLE STRENGTH CAP [Concomitant]

REACTIONS (13)
  - ALANINE AMINOTRANSFERASE INCREASED [None]
  - ASPARTATE AMINOTRANSFERASE INCREASED [None]
  - BILE DUCT STENOSIS [None]
  - BILIARY DILATATION [None]
  - CHROMATURIA [None]
  - ELECTROCARDIOGRAM Q WAVE ABNORMAL [None]
  - ELECTROCARDIOGRAM T WAVE AMPLITUDE DECREASED [None]
  - GAMMA-GLUTAMYLTRANSFERASE INCREASED [None]
  - JAUNDICE CHOLESTATIC [None]
  - POLYP [None]
  - PRURITUS [None]
  - RASH [None]
  - SUPRAVENTRICULAR EXTRASYSTOLES [None]
